FAERS Safety Report 11100452 (Version 1)
Quarter: 2015Q2

REPORT INFORMATION
  Report Type: Spontaneous
  Country: US (occurrence: None)
  Receive Date: 20150507
  Receipt Date: 20150507
  Transmission Date: 20150821
  Serious: Yes (Disabling, Other)
  Sender: FDA-Public Use
  Company Number: None

PATIENT
  Age: 57 Year
  Sex: Female
  Weight: 86.18 kg

DRUGS (2)
  1. LEVAFLOXACIN 50MG MR READY^S PHARMACEUTICALS [Suspect]
     Active Substance: LEVOFLOXACIN
     Indication: PNEUMONIA
     Dosage: 500MG  ONCE DAILY TAKEN BY MOUTH
     Route: 048
     Dates: start: 20121220, end: 20121230
  2. VITAMIN D [Concomitant]
     Active Substance: CHOLECALCIFEROL

REACTIONS (11)
  - Arthralgia [None]
  - Amnesia [None]
  - Tendonitis [None]
  - Chondropathy [None]
  - Burning sensation [None]
  - Abasia [None]
  - Dysstasia [None]
  - Ageusia [None]
  - Anosmia [None]
  - Rash pruritic [None]
  - Pain [None]

NARRATIVE: CASE EVENT DATE: 20121225
